FAERS Safety Report 13448713 (Version 3)
Quarter: 2017Q3

REPORT INFORMATION
  Report Type: Report from Study
  Country: TR (occurrence: TR)
  Receive Date: 20170417
  Receipt Date: 20170824
  Transmission Date: 20171127
  Serious: Yes (Disabling, Other)
  Sender: FDA-Public Use
  Company Number: TR-GILEAD-2017-0267106

PATIENT
  Age: 64 Year
  Sex: Female

DRUGS (1)
  1. LEDIPASVIR/SOFOSBUVIR [Suspect]
     Active Substance: LEDIPASVIR\SOFOSBUVIR
     Indication: CHRONIC HEPATITIS C
     Dosage: UNK
     Route: 065
     Dates: start: 20160829, end: 20170228

REACTIONS (3)
  - Cerebrovascular accident [Not Recovered/Not Resolved]
  - Hepatic failure [Unknown]
  - Ascites [Unknown]

NARRATIVE: CASE EVENT DATE: 201609
